FAERS Safety Report 9102238 (Version 2)
Quarter: 2013Q3

REPORT INFORMATION
  Report Type: Spontaneous
  Country: US (occurrence: US)
  Receive Date: 20130218
  Receipt Date: 20130712
  Transmission Date: 20140515
  Serious: No
  Sender: FDA-Public Use
  Company Number: US-BIOGENIDEC-2013BI012446

PATIENT
  Age: 48 Year
  Sex: Female

DRUGS (1)
  1. TYSABRI [Suspect]
     Indication: MULTIPLE SCLEROSIS
     Route: 042
     Dates: start: 20110127

REACTIONS (7)
  - Tremor [Unknown]
  - Hypoaesthesia [Unknown]
  - Fall [Unknown]
  - Pain in extremity [Unknown]
  - Balance disorder [Unknown]
  - Muscle twitching [Unknown]
  - Drug ineffective [Not Recovered/Not Resolved]
